FAERS Safety Report 17808655 (Version 1)
Quarter: 2020Q2

REPORT INFORMATION
  Report Type: Spontaneous
  Country: TW (occurrence: TW)
  Receive Date: 20200520
  Receipt Date: 20200520
  Transmission Date: 20200714
  Serious: Yes (Death)
  Sender: FDA-Public Use
  Company Number: TW-ABBVIE-20K-153-3409908-00

PATIENT
  Age: 20 Year
  Sex: Female

DRUGS (3)
  1. POSANOL [Concomitant]
     Active Substance: POSACONAZOLE
     Indication: PRODUCT USED FOR UNKNOWN INDICATION
  2. VENCLEXTA [Suspect]
     Active Substance: VENETOCLAX
     Indication: ACUTE MYELOID LEUKAEMIA
     Dosage: DURATION : 10 DAYS
     Route: 048
  3. FLAG-IDA [Concomitant]
     Active Substance: CYTARABINE\FLUDARABINE\GRANULOCYTE COLONY-STIMULATING FACTOR NOS\IDARUBICIN
     Indication: PRODUCT USED FOR UNKNOWN INDICATION

REACTIONS (3)
  - Neutropenia [Unknown]
  - Acute myeloid leukaemia [Fatal]
  - Blast cells present [Unknown]

NARRATIVE: CASE EVENT DATE: 2020
